FAERS Safety Report 6554902-0 (Version None)
Quarter: 2010Q1

REPORT INFORMATION
  Report Type: 
  Country: None (occurrence: None)
  Receive Date: 20100125
  Receipt Date: 20100112
  Transmission Date: 20100710
  Serious: Yes (Other)
  Sender: FDA-Public Use
  Company Number: 230411J10USA

PATIENT
  Age: 41 Year
  Sex: Female

DRUGS (5)
  1. REBIF [Suspect]
     Indication: MULTIPLE SCLEROSIS
     Dosage: 44 MCG, 3 IN 1 WEEKS, SUBCUTANEOUS
     Route: 058
     Dates: start: 20041228
  2. TYLENOL PM (TYLENOL PM) [Concomitant]
  3. MOTRIN [Concomitant]
  4. MULTI-VITAMINS [Concomitant]
  5. LEVOXYL [Concomitant]

REACTIONS (1)
  - CYST [None]
